FAERS Safety Report 12428824 (Version 1)
Quarter: 2016Q2

REPORT INFORMATION
  Report Type: Spontaneous
  Country: US (occurrence: None)
  Receive Date: 20160601
  Receipt Date: 20160601
  Transmission Date: 20160815
  Serious: No
  Sender: FDA-Public Use
  Company Number: None

PATIENT
  Age: 37 Year
  Sex: Female

DRUGS (8)
  1. TROSPIUM [Concomitant]
     Active Substance: TROSPIUM
  2. LANTUS [Concomitant]
     Active Substance: INSULIN GLARGINE
  3. SPRINTEC [Concomitant]
     Active Substance: ETHINYL ESTRADIOL\NORGESTIMATE
  4. AMPYRA [Suspect]
     Active Substance: DALFAMPRIDINE
     Indication: MULTIPLE SCLEROSIS
     Route: 048
     Dates: start: 201304
  5. LOVASTATIN. [Concomitant]
     Active Substance: LOVASTATIN
  6. HUMALOG [Concomitant]
     Active Substance: INSULIN LISPRO
  7. LISINOPRIL. [Concomitant]
     Active Substance: LISINOPRIL
  8. GLATOPA [Concomitant]
     Active Substance: GLATIRAMER ACETATE

REACTIONS (1)
  - Urinary tract infection [None]

NARRATIVE: CASE EVENT DATE: 20160504
